FAERS Safety Report 9996575 (Version 2)
Quarter: 2014Q1

REPORT INFORMATION
  Report Type: Spontaneous
  Country: FR (occurrence: FR)
  Receive Date: 20140311
  Receipt Date: 20140317
  Transmission Date: 20141002
  Serious: Yes (Hospitalization)
  Sender: FDA-Public Use
  Company Number: FR-BRISTOL-MYERS SQUIBB COMPANY-20384913

PATIENT
  Age: 62 Year
  Sex: Male

DRUGS (1)
  1. KOMBOGLYZE [Suspect]
     Indication: TYPE 2 DIABETES MELLITUS
     Dosage: SAXAGLIPTIN 2.5MG + METFORMIN 1000MG

REACTIONS (1)
  - Ischaemic cardiomyopathy [Recovering/Resolving]
